FAERS Safety Report 25058383 (Version 1)
Quarter: 2025Q1

REPORT INFORMATION
  Report Type: Spontaneous
  Country: US (occurrence: None)
  Receive Date: 20250309
  Receipt Date: 20250309
  Transmission Date: 20250409
  Serious: Yes (Other)
  Sender: FDA-CTU
  Company Number: None

PATIENT
  Age: 53 Year
  Sex: Female
  Weight: 64.35 kg

DRUGS (1)
  1. METHYLCOBALAMIN\SEMAGLUTIDE [Suspect]
     Active Substance: METHYLCOBALAMIN\SEMAGLUTIDE
     Indication: Overweight
     Route: 030
     Dates: start: 20231009, end: 20250106

REACTIONS (2)
  - Salivary gland mass [None]
  - Noninfective sialoadenitis [None]

NARRATIVE: CASE EVENT DATE: 20241004
